FAERS Safety Report 16564952 (Version 4)
Quarter: 2019Q4

REPORT INFORMATION
  Report Type: Report from Study
  Country: DE (occurrence: DE)
  Receive Date: 20190712
  Receipt Date: 20191018
  Transmission Date: 20200122
  Serious: Yes (Other)
  Sender: FDA-Public Use
  Company Number: DE-BRISTOL-MYERS SQUIBB COMPANY-BMS-2019-034794

PATIENT
  Age: 68 Year
  Sex: Female

DRUGS (3)
  1. METAMIZOL NATRIUM [Concomitant]
     Indication: PRODUCT USED FOR UNKNOWN INDICATION
     Route: 065
  2. NIVOLUMAB [Suspect]
     Active Substance: NIVOLUMAB
     Indication: MALIGNANT MELANOMA
     Dosage: 240 MILLIGRAM, Q2WK
     Route: 042
     Dates: start: 20190102
  3. NYSTATIN. [Concomitant]
     Active Substance: NYSTATIN
     Indication: PRODUCT USED FOR UNKNOWN INDICATION
     Route: 065

REACTIONS (20)
  - Neoplasm [Unknown]
  - Fibroadenoma of breast [Unknown]
  - Lung neoplasm [Not Recovered/Not Resolved]
  - Papule [Not Recovered/Not Resolved]
  - Fatigue [Not Recovered/Not Resolved]
  - Nasopharyngitis [Recovering/Resolving]
  - Dermatitis [Not Recovered/Not Resolved]
  - Agitation [Recovering/Resolving]
  - Cough [Recovering/Resolving]
  - Headache [Not Recovered/Not Resolved]
  - Paraesthesia [Not Recovered/Not Resolved]
  - Dyspnoea [Recovering/Resolving]
  - Blood creatine phosphokinase increased [Recovered/Resolved]
  - Arthralgia [Not Recovered/Not Resolved]
  - Haematuria [Recovering/Resolving]
  - Pruritus [Not Recovered/Not Resolved]
  - Rash maculo-papular [Not Recovered/Not Resolved]
  - Influenza like illness [Recovered/Resolved]
  - Urinary retention [Not Recovered/Not Resolved]
  - Candida infection [Not Recovered/Not Resolved]

NARRATIVE: CASE EVENT DATE: 20190114
